FAERS Safety Report 24838641 (Version 1)
Quarter: 2025Q1

REPORT INFORMATION
  Report Type: Spontaneous
  Country: IQ (occurrence: IQ)
  Receive Date: 20250113
  Receipt Date: 20250113
  Transmission Date: 20250408
  Serious: Yes (Death)
  Sender: AMGEN
  Company Number: IQ-AMGEN-IRQSP2025001960

PATIENT
  Age: 78 Year
  Sex: Male

DRUGS (4)
  1. KYPROLIS [Suspect]
     Active Substance: CARFILZOMIB
     Indication: Plasma cell myeloma refractory
     Dosage: 20 MICROGRAM/SQ. METER, QWK ONCE WEEKLY
     Route: 040
     Dates: start: 20241118
  2. KYPROLIS [Suspect]
     Active Substance: CARFILZOMIB
     Route: 040
     Dates: end: 20241203
  3. SARCLISA [Concomitant]
     Active Substance: ISATUXIMAB-IRFC
     Indication: Plasma cell myeloma refractory
     Route: 040
     Dates: start: 20241118, end: 20241203
  4. DEXAMETHASONE [Concomitant]
     Active Substance: DEXAMETHASONE
     Indication: Plasma cell myeloma refractory
     Route: 040
     Dates: start: 20241118, end: 20241203

REACTIONS (1)
  - Pleural effusion [Fatal]

NARRATIVE: CASE EVENT DATE: 20241201
